FAERS Safety Report 7808986 (Version 6)
Quarter: 2013Q3

REPORT INFORMATION
  Report Type: Report from Study
  Country: CA (occurrence: CA)
  Receive Date: 20110211
  Receipt Date: 20130923
  Transmission Date: 20140515
  Serious: Yes (Hospitalization, Disabling, Other)
  Sender: FDA-Public Use
  Company Number: PHHY2011CA02158

PATIENT
  Age: 64 Year
  Sex: Female

DRUGS (16)
  1. SANDOSTATIN [Suspect]
     Indication: NEUROENDOCRINE TUMOUR
     Dosage: 150 UG, TID
     Route: 058
     Dates: start: 20101219, end: 20110317
  2. SANDOSTATIN LAR [Suspect]
     Indication: CARCINOID TUMOUR
     Dosage: 30 MG, EVERY 4 WEEKS
     Route: 030
     Dates: start: 20110401
  3. COREG [Concomitant]
     Dosage: 18 MG, QD
  4. ALTACE [Concomitant]
  5. CARVEDIOL [Concomitant]
     Dosage: UNK UKN, UNK
  6. ASPIRIN [Concomitant]
     Dosage: UNK UKN, UNK
  7. VITAMIN D [Concomitant]
     Dosage: UNK UKN, UNK
  8. MULTIVITAMIN [Concomitant]
     Dosage: UNK UKN, UNK
  9. TYLENOL [Concomitant]
     Dosage: UNK UKN, UNK
  10. COUMADIN [Concomitant]
     Dosage: UNK UKN, UNK
  11. VITAMIN C [Concomitant]
     Dosage: UNK UKN, UNK
  12. CALCIUM [Concomitant]
     Dosage: UNK UKN, UNK
  13. DICETEL [Concomitant]
     Dosage: UNK UKN, UNK
  14. PAXIL [Concomitant]
     Dosage: UNK UKN, UNK
  15. IMOVANE [Concomitant]
     Dosage: UNK UKN, UNK
  16. LASIX [Concomitant]
     Dosage: UNK UKN, UNK

REACTIONS (13)
  - Carcinoid heart disease [Recovered/Resolved]
  - Cardiac failure congestive [Recovered/Resolved]
  - Atrial fibrillation [Recovered/Resolved]
  - Hypotension [Unknown]
  - Bronchitis [Unknown]
  - Syncope [Unknown]
  - Thrombosis [Unknown]
  - Rash pruritic [Recovered/Resolved]
  - Eye inflammation [Unknown]
  - Rash maculo-papular [Unknown]
  - Fatigue [Unknown]
  - Asthenia [Unknown]
  - Dyspnoea [Unknown]
